FAERS Safety Report 23824325 (Version 1)
Quarter: 2024Q2

REPORT INFORMATION
  Report Type: Spontaneous
  Country: DE (occurrence: DE)
  Receive Date: 20240507
  Receipt Date: 20240507
  Transmission Date: 20240716
  Serious: Yes (Congenital Anomaly, Other)
  Sender: FDA-Public Use
  Company Number: None

PATIENT
  Age: 1 Day
  Sex: Male
  Weight: 1.4 kg

DRUGS (6)
  1. PREGABALIN [Suspect]
     Active Substance: PREGABALIN
     Indication: Post-traumatic stress disorder
     Dosage: 600 MILLIGRAM, QD
     Route: 064
     Dates: start: 20211213, end: 20220711
  2. QUETIAPINE FUMARATE [Suspect]
     Active Substance: QUETIAPINE FUMARATE
     Indication: Tension
     Dosage: UNK
     Route: 064
     Dates: start: 20211213, end: 20220711
  3. VENLAFAXINE [Suspect]
     Active Substance: VENLAFAXINE HYDROCHLORIDE
     Indication: Anxiety disorder
     Dosage: 150 MILLIGRAM, QD
     Route: 064
     Dates: start: 20211213, end: 20220711
  4. METHADONE [Suspect]
     Active Substance: METHADONE HYDROCHLORIDE
     Indication: Drug dependence
     Dosage: 60 MILLIGRAM, QD
     Route: 064
     Dates: start: 20211213, end: 20220711
  5. ONDANSETRON [Suspect]
     Active Substance: ONDANSETRON
     Indication: Morning sickness
     Dosage: UNK
     Route: 064
  6. MINERALS\VITAMINS [Suspect]
     Active Substance: MINERALS\VITAMINS
     Indication: Prophylaxis of neural tube defect
     Dosage: UNK
     Route: 064

REACTIONS (5)
  - Congenital nystagmus [Unknown]
  - Congenital hydrocephalus [Unknown]
  - Developmental delay [Unknown]
  - Drug withdrawal syndrome neonatal [Recovered/Resolved]
  - Foetal exposure during pregnancy [Unknown]

NARRATIVE: CASE EVENT DATE: 20220701
